FAERS Safety Report 12618833 (Version 1)
Quarter: 2016Q3

REPORT INFORMATION
  Report Type: Spontaneous
  Country: US (occurrence: None)
  Receive Date: 20160802
  Receipt Date: 20160802
  Transmission Date: 20161109
  Serious: No
  Sender: FDA-Public Use
  Company Number: None

PATIENT
  Age: 56 Year
  Sex: Male

DRUGS (2)
  1. PROGRAF [Suspect]
     Active Substance: TACROLIMUS\TACROLIMUS ANHYDROUS
     Indication: HEART TRANSPLANT
     Dosage: 7 CAPSULE(S) EVERY 12 HOURS BY MOUTH
     Route: 048
     Dates: start: 20160622
  2. MYCOPHENOLATE 500MG ROXANE LABORATORIES INC. [Suspect]
     Active Substance: MYCOPHENOLATE MOFETIL
     Indication: HEART TRANSPLANT
     Dosage: 3 TABLET(S) TWICE A DAY BY MOUTH
     Route: 048
     Dates: start: 20160701

REACTIONS (3)
  - Chills [None]
  - Flushing [None]
  - Tremor [None]

NARRATIVE: CASE EVENT DATE: 20160624
